FAERS Safety Report 13023287 (Version 1)
Quarter: 2016Q4

REPORT INFORMATION
  Report Type: Spontaneous
  Country: BR (occurrence: BR)
  Receive Date: 20161213
  Receipt Date: 20161213
  Transmission Date: 20170207
  Serious: Yes (Other)
  Sender: FDA-Public Use
  Company Number: BR-ALEXION PHARMACEUTICALS INC-A201609623

PATIENT
  Sex: Female

DRUGS (1)
  1. SOLIRIS [Suspect]
     Active Substance: ECULIZUMAB
     Indication: HAEMOLYTIC URAEMIC SYNDROME
     Dosage: UNK
     Route: 042

REACTIONS (7)
  - C-reactive protein increased [Unknown]
  - Pyrexia [Unknown]
  - Nausea [Unknown]
  - Vomiting [Unknown]
  - Haemolytic anaemia [Unknown]
  - Chills [Unknown]
  - Haemoglobin decreased [Unknown]
